FAERS Safety Report 22298092 (Version 1)
Quarter: 2023Q2

REPORT INFORMATION
  Report Type: Spontaneous
  Country: US (occurrence: None)
  Receive Date: 20230505
  Receipt Date: 20230505
  Transmission Date: 20230722
  Serious: Yes (Hospitalization)
  Sender: FDA-Public Use
  Company Number: None

PATIENT
  Age: 56 Year
  Sex: Female
  Weight: 125.6 kg

DRUGS (2)
  1. GAMMAGARD [Suspect]
     Active Substance: HUMAN IMMUNOGLOBULIN G
     Indication: Neuropathy peripheral
     Route: 042
     Dates: start: 20230403, end: 20230412
  2. GAMMAGARD [Suspect]
     Active Substance: HUMAN IMMUNOGLOBULIN G
     Indication: Neuropathy peripheral
     Dosage: FREQUENCY : TWICE A WEEK;?
     Route: 042
     Dates: start: 20230403, end: 20230412

REACTIONS (4)
  - Pyrexia [None]
  - Nausea [None]
  - Headache [None]
  - Meningitis aseptic [None]

NARRATIVE: CASE EVENT DATE: 20230414
